FAERS Safety Report 25120716 (Version 2)
Quarter: 2025Q2

REPORT INFORMATION
  Report Type: Spontaneous
  Country: US (occurrence: US)
  Receive Date: 20250325
  Receipt Date: 20250401
  Transmission Date: 20250717
  Serious: No
  Sender: ELI LILLY AND CO
  Company Number: US-ELI_LILLY_AND_COMPANY-US202503020834

PATIENT
  Age: 19 Year
  Sex: Male

DRUGS (3)
  1. TADALAFIL [Suspect]
     Active Substance: TADALAFIL
     Indication: Pulmonary arterial hypertension
     Route: 065
  2. TYVASO [Suspect]
     Active Substance: TREPROSTINIL
     Indication: Pulmonary arterial hypertension
     Dosage: 4 BREATHS, QID
     Route: 055
     Dates: start: 202502
  3. TYVASO [Suspect]
     Active Substance: TREPROSTINIL
     Dosage: 5 BREATHS, QID
     Route: 055
     Dates: start: 202502

REACTIONS (9)
  - Pneumonia [Unknown]
  - Product dose omission issue [Unknown]
  - Exposure via unknown route [Unknown]
  - Pyrexia [Unknown]
  - Illness [Unknown]
  - Influenza [Unknown]
  - Diarrhoea [Unknown]
  - Headache [Unknown]
  - Hypotension [Unknown]

NARRATIVE: CASE EVENT DATE: 20250301
